FAERS Safety Report 18834622 (Version 2)
Quarter: 2021Q1

REPORT INFORMATION
  Report Type: Spontaneous
  Country: FR (occurrence: FR)
  Receive Date: 20210203
  Receipt Date: 20210222
  Transmission Date: 20210419
  Serious: Yes (Death)
  Sender: FDA-Public Use
  Company Number: FR-TEVA-2021-FR-1874491

PATIENT
  Age: 58 Year
  Sex: Male
  Weight: 56 kg

DRUGS (8)
  1. CODEINE [Interacting]
     Active Substance: CODEINE
     Indication: PRODUCT USED FOR UNKNOWN INDICATION
     Route: 065
  2. GABAPENTIN. [Interacting]
     Active Substance: GABAPENTIN
     Indication: NEURALGIA
     Dosage: DOSAGE WAS INCREASED IN 2018 AND IN MID 2019
     Route: 065
  3. GABAPENTIN. [Interacting]
     Active Substance: GABAPENTIN
     Indication: NEURALGIA
     Dosage: DOSAGE WAS INCREASED IN 2018 AND IN MID 2019
     Route: 065
  4. BROMAZEPAM [Interacting]
     Active Substance: BROMAZEPAM
     Indication: PRODUCT USED FOR UNKNOWN INDICATION
     Dosage: IN THE EVENING
     Route: 065
  5. GABAPENTIN. [Interacting]
     Active Substance: GABAPENTIN
     Indication: NEURALGIA
     Dosage: THRICE DAILY? MORNING, NOON AND EVENING
     Route: 065
     Dates: start: 2017
  6. GABAPENTIN. [Suspect]
     Active Substance: GABAPENTIN
     Indication: NEURALGIA
     Dosage: THRICE DAILY? MORNING, NOON AND EVENING
     Route: 065
     Dates: start: 2017
  7. GABAPENTIN. [Interacting]
     Active Substance: GABAPENTIN
     Indication: DEPRESSION
  8. PARACETAMOL [Interacting]
     Active Substance: ACETAMINOPHEN
     Indication: PRODUCT USED FOR UNKNOWN INDICATION
     Dosage: AS NEEDED
     Route: 065

REACTIONS (4)
  - Overdose [Fatal]
  - Toxicity to various agents [Fatal]
  - Potentiating drug interaction [Fatal]
  - Intentional product misuse [Fatal]
